FAERS Safety Report 6050733-9 (Version None)
Quarter: 2009Q1

REPORT INFORMATION
  Report Type: 
  Country: None (occurrence: None)
  Receive Date: 20090121
  Receipt Date: 20090108
  Transmission Date: 20090719
  Serious: Yes (Hospitalization)
  Sender: FDA-Public Use
  Company Number: 2008-00285

PATIENT
  Age: 73 Year
  Sex: Female
  Weight: 61 kg

DRUGS (11)
  1. VELCADE [Suspect]
     Indication: MULTIPLE MYELOMA
     Dosage: 1.8 MG, INTRAVENOUS; 1.5 MG, INTRAVENOUS
     Route: 042
     Dates: start: 20071123, end: 20071203
  2. VELCADE [Suspect]
     Indication: MULTIPLE MYELOMA
     Dosage: 1.8 MG, INTRAVENOUS; 1.5 MG, INTRAVENOUS
     Route: 042
     Dates: start: 20071217, end: 20071217
  3. DEXAMETHASONE TAB [Suspect]
     Indication: MULTIPLE MYELOMA
     Dosage: 20 MG, INTRAVENOUS
     Route: 042
     Dates: start: 20071123, end: 20071204
  4. LAXOBERON (SODIUM PICOSULFATE) [Concomitant]
  5. SENNOSIDE A (SENNOSIDE A) [Concomitant]
  6. SORBITOL (SORBITOL) [Concomitant]
  7. LECICARBON (SODIUM BICARBONATE, LECITHIN, SODIUM PHOSPHATE MONOBASIC ( [Concomitant]
  8. MAGNESIUM OXIDE (MAGNESIUM OXIDE) [Concomitant]
  9. DOPAMINE HCL [Concomitant]
  10. ULINASTATIN (ULINASTATIN) [Concomitant]
  11. HYDROCORTISONE SODIUM SUCCINATE [Concomitant]

REACTIONS (13)
  - ASPARTATE AMINOTRANSFERASE INCREASED [None]
  - BLOOD LACTATE DEHYDROGENASE INCREASED [None]
  - C-REACTIVE PROTEIN INCREASED [None]
  - CAPILLARY LEAK SYNDROME [None]
  - CONSTIPATION [None]
  - HYPERPHOSPHATASAEMIA [None]
  - HYPONATRAEMIA [None]
  - HYPOTENSION [None]
  - NON-CARDIOGENIC PULMONARY OEDEMA [None]
  - PLATELET COUNT DECREASED [None]
  - PYREXIA [None]
  - THROMBOCYTOPENIA [None]
  - TUMOUR LYSIS SYNDROME [None]
